FAERS Safety Report 12598815 (Version 1)
Quarter: 2016Q3

REPORT INFORMATION
  Report Type: Report from Study
  Country: BR (occurrence: BR)
  Receive Date: 20160726
  Receipt Date: 20160726
  Transmission Date: 20161109
  Serious: Yes (Other)
  Sender: FDA-Public Use
  Company Number: PHHY2015BR037819

PATIENT
  Age: 40 Year
  Sex: Male
  Weight: 60 kg

DRUGS (2)
  1. EXJADE [Suspect]
     Active Substance: DEFERASIROX
     Indication: THALASSAEMIA BETA
     Dosage: 40 MG/KG (1 TABLET 250 MG PLUS 4 TABLETS 500 MG), QD
     Route: 048
     Dates: start: 2000
  2. GLIFAGE [Interacting]
     Active Substance: METFORMIN HYDROCHLORIDE
     Indication: DIABETES MELLITUS
     Dosage: BID
     Route: 065

REACTIONS (6)
  - Pruritus [Unknown]
  - Drug interaction [Unknown]
  - Dermatitis bullous [Recovering/Resolving]
  - Diabetes mellitus [Unknown]
  - Serum ferritin increased [Unknown]
  - Aspartate aminotransferase increased [Unknown]

NARRATIVE: CASE EVENT DATE: 20150324
